FAERS Safety Report 22020400 (Version 3)
Quarter: 2023Q2

REPORT INFORMATION
  Report Type: Spontaneous
  Country: US (occurrence: US)
  Receive Date: 20230222
  Receipt Date: 20230503
  Transmission Date: 20230722
  Serious: Yes (Hospitalization)
  Sender: FDA-Public Use
  Company Number: US-SA-SAC20230221001178

PATIENT
  Sex: Female
  Weight: 91.262 kg

DRUGS (20)
  1. DUPIXENT [Suspect]
     Active Substance: DUPILUMAB
     Indication: Dermatitis allergic
     Dosage: 300 MG, QOW
     Route: 058
  2. HYDROXYZINE [Concomitant]
     Active Substance: HYDROXYZINE HYDROCHLORIDE
  3. OXYCODONE [Concomitant]
     Active Substance: OXYCODONE
  4. CALCITRIOL [Concomitant]
     Active Substance: CALCITRIOL
  5. ADBRY [Concomitant]
     Active Substance: TRALOKINUMAB-LDRM
  6. MITIGARE [Concomitant]
     Active Substance: COLCHICINE
  7. DOFETILIDE [Concomitant]
     Active Substance: DOFETILIDE
  8. JARDIANCE [Concomitant]
     Active Substance: EMPAGLIFLOZIN
  9. FEBUXOSTAT [Concomitant]
     Active Substance: FEBUXOSTAT
  10. METOPROLOL [Concomitant]
     Active Substance: METOPROLOL
  11. SYNTHROID [Concomitant]
     Active Substance: LEVOTHYROXINE SODIUM
  12. FLUOCINOLONE ACETONIDE [Concomitant]
     Active Substance: FLUOCINOLONE ACETONIDE
  13. HUMALOG [Concomitant]
     Active Substance: INSULIN LISPRO
  14. ELIQUIS [Concomitant]
     Active Substance: APIXABAN
  15. EPLERENONE [Concomitant]
     Active Substance: EPLERENONE
  16. CLOBETASOL PROPIONATE [Concomitant]
     Active Substance: CLOBETASOL PROPIONATE
  17. ATORVASTATIN [Concomitant]
     Active Substance: ATORVASTATIN
  18. TORSEMIDE [Concomitant]
     Active Substance: TORSEMIDE
  19. PANTOPRAZOLE [Concomitant]
     Active Substance: PANTOPRAZOLE
  20. LINZESS [Concomitant]
     Active Substance: LINACLOTIDE

REACTIONS (2)
  - Liver disorder [Unknown]
  - Drug ineffective [Unknown]
